FAERS Safety Report 4491904-2 (Version None)
Quarter: 2004Q4

REPORT INFORMATION
  Report Type: 
  Country: None (occurrence: None)
  Receive Date: 20041029
  Receipt Date: 20041029
  Transmission Date: 20050328
  Serious: Yes (Hospitalization)
  Sender: FDA-Public Use
  Company Number: None

PATIENT
  Age: 70 Year
  Sex: Male

DRUGS (1)
  1. AMIODARONE [Suspect]
     Indication: ATRIAL FIBRILLATION
     Dosage: 400 MG   DAILY   ORAL
     Route: 048

REACTIONS (3)
  - BRADYCARDIA [None]
  - DIZZINESS [None]
  - DYSPNOEA EXERTIONAL [None]
